FAERS Safety Report 18252639 (Version 1)
Quarter: 2020Q3

REPORT INFORMATION
  Report Type: Spontaneous
  Country: US (occurrence: US)
  Receive Date: 20200910
  Receipt Date: 20200910
  Transmission Date: 20201103
  Serious: No
  Sender: FDA-Public Use
  Company Number: None

PATIENT
  Age: 57 Year
  Sex: Female
  Weight: 67.5 kg

DRUGS (11)
  1. ZETIA [Concomitant]
     Active Substance: EZETIMIBE
  2. CRESTOR [Concomitant]
     Active Substance: ROSUVASTATIN CALCIUM
  3. SYNTHROID [Concomitant]
     Active Substance: LEVOTHYROXINE SODIUM
  4. RANEXA [Concomitant]
     Active Substance: RANOLAZINE
  5. BRILINTAL [Concomitant]
  6. MULTIVITAMIN [Concomitant]
     Active Substance: VITAMINS
  7. VITAMIN B12 [Concomitant]
     Active Substance: CYANOCOBALAMIN
  8. REPATHA [Suspect]
     Active Substance: EVOLOCUMAB
     Indication: CARDIAC DISORDER
     Dosage: ?          QUANTITY:1 INJECTION(S);OTHER FREQUENCY:1 EVERY 2 WEEKS;OTHER ROUTE:INJECTION IN STOMACH?
  9. METOPROLOL. [Concomitant]
     Active Substance: METOPROLOL
  10. VITAMIN D2 [Concomitant]
     Active Substance: ERGOCALCIFEROL
  11. VITAMIN C [Concomitant]
     Active Substance: ASCORBIC ACID

REACTIONS (12)
  - Confusional state [None]
  - Aphasia [None]
  - Manufacturing issue [None]
  - Injection site bruising [None]
  - Slow speech [None]
  - Product formulation issue [None]
  - Back pain [None]
  - Fatigue [None]
  - Injection site haemorrhage [None]
  - Influenza like illness [None]
  - Malaise [None]
  - Hypersomnia [None]

NARRATIVE: CASE EVENT DATE: 20200908
